FAERS Safety Report 15713405 (Version 1)
Quarter: 2018Q4

REPORT INFORMATION
  Report Type: Spontaneous
  Country: US (occurrence: US)
  Receive Date: 20181212
  Receipt Date: 20181212
  Transmission Date: 20190205
  Serious: No
  Sender: FDA-Public Use
  Company Number: US-GLAXOSMITHKLINE-US2018217488

PATIENT
  Sex: Female

DRUGS (1)
  1. BENLYSTA [Suspect]
     Active Substance: BELIMUMAB
     Indication: PRODUCT USED FOR UNKNOWN INDICATION
     Dosage: UNK UNK, U
     Dates: start: 201712, end: 201806

REACTIONS (5)
  - Depressed mood [Unknown]
  - Social avoidant behaviour [Unknown]
  - Visual impairment [Unknown]
  - Housebound [Unknown]
  - Depression [Unknown]
